FAERS Safety Report 13012215 (Version 1)
Quarter: 2016Q4

REPORT INFORMATION
  Report Type: Report from Study
  Country: IN (occurrence: IN)
  Receive Date: 20161209
  Receipt Date: 20161209
  Transmission Date: 20170207
  Serious: Yes (Hospitalization, Other)
  Sender: FDA-Public Use
  Company Number: IN-ASTRAZENECA-2016SF29458

PATIENT
  Age: 72 Year
  Sex: Female

DRUGS (4)
  1. FORACORT [Concomitant]
     Active Substance: BUDESONIDE\FORMOTEROL FUMARATE
     Indication: ASTHMA
     Dates: start: 2006
  2. FASLODEX [Suspect]
     Active Substance: FULVESTRANT
     Indication: BREAST CANCER
     Dosage: 500.0MG UNKNOWN
     Route: 030
  3. ASTHALIN INHALER [Concomitant]
     Indication: ASTHMA
     Dates: start: 2006
  4. CEFTRIAXONE+SULBACTAM [Concomitant]
     Indication: PNEUMONIA
     Route: 042
     Dates: start: 20161128

REACTIONS (1)
  - Pneumonia [Not Recovered/Not Resolved]

NARRATIVE: CASE EVENT DATE: 20161128
